FAERS Safety Report 5524715-7 (Version None)
Quarter: 2007Q4

REPORT INFORMATION
  Report Type: 
  Country: None (occurrence: None)
  Receive Date: 20071123
  Receipt Date: 20071119
  Transmission Date: 20080405
  Serious: Yes (Hospitalization)
  Sender: FDA-Public Use
  Company Number: PHBS2007JP17819

PATIENT
  Age: 59 Year
  Sex: Female
  Weight: 53 kg

DRUGS (4)
  1. ZOMETA [Suspect]
     Indication: METASTASES TO BONE
     Dosage: UNK, UNK
     Route: 042
     Dates: start: 20060703, end: 20070301
  2. THYRADIN [Concomitant]
     Indication: DIABETES MELLITUS
  3. HUMACART-N [Concomitant]
     Indication: DIABETES MELLITUS
     Route: 042
  4. PYDOXAL [Concomitant]
     Indication: BREAST CANCER
     Route: 048

REACTIONS (9)
  - BONE DISORDER [None]
  - IMPAIRED HEALING [None]
  - ORAL SURGERY [None]
  - OSTEONECROSIS [None]
  - PERIODONTAL DISEASE [None]
  - PRIMARY SEQUESTRUM [None]
  - SCINTIGRAPHY [None]
  - SEQUESTRECTOMY [None]
  - TOOTH EXTRACTION [None]
